FAERS Safety Report 14954048 (Version 1)
Quarter: 2018Q2

REPORT INFORMATION
  Report Type: Spontaneous
  Country: GB (occurrence: GB)
  Receive Date: 20180530
  Receipt Date: 20180530
  Transmission Date: 20180711
  Serious: Yes (Disabling, Other)
  Sender: FDA-Public Use
  Company Number: GB-TEVA-2018-GB-899830

PATIENT
  Age: 65 Year
  Sex: Male
  Weight: 70.3 kg

DRUGS (4)
  1. LANSOPRAZOLE. [Concomitant]
     Active Substance: LANSOPRAZOLE
     Route: 065
  2. MONOPOST [Concomitant]
     Route: 065
  3. TAMSULOSIN HYDROCHLORIDE. [Concomitant]
     Active Substance: TAMSULOSIN HYDROCHLORIDE
     Route: 065
  4. DORZOLAMIDE [Suspect]
     Active Substance: DORZOLAMIDE
     Indication: GLAUCOMA
     Dosage: 2 GTT DAILY;
     Route: 047
     Dates: start: 201709, end: 20180202

REACTIONS (10)
  - Dyspnoea [Unknown]
  - Burn oral cavity [Not Recovered/Not Resolved]
  - Tongue dry [Unknown]
  - Eye irritation [Unknown]
  - Oral infection [Not Recovered/Not Resolved]
  - Dysphagia [Unknown]
  - Ageusia [Unknown]
  - Dry mouth [Not Recovered/Not Resolved]
  - Gingival blister [Unknown]
  - Glossitis [Unknown]

NARRATIVE: CASE EVENT DATE: 20171018
